FAERS Safety Report 4802415-6 (Version None)
Quarter: 2005Q4

REPORT INFORMATION
  Report Type: 
  Country: None (occurrence: None)
  Receive Date: 20051014
  Receipt Date: 20041118
  Transmission Date: 20060501
  Serious: Yes (Other)
  Sender: FDA-Public Use
  Company Number: 2004070894

PATIENT
  Age: 44 Year
  Sex: Female

DRUGS (8)
  1. NEURONTIN [Suspect]
     Indication: NERVE INJURY
     Dosage: 1200 MG (1 D), ORAL
     Route: 048
     Dates: start: 19980601, end: 20040801
  2. FENTANYL [Concomitant]
  3. FLUOXETINE HCL [Concomitant]
  4. BUPROPION HYDROCHLORIDE [Concomitant]
  5. VICODIN [Concomitant]
  6. CYCLOBENZAPRINE HCL [Concomitant]
  7. ATORVASTATIN CALCIUM [Concomitant]
  8. LISINOPRIL [Concomitant]

REACTIONS (12)
  - ANXIETY [None]
  - BLOOD GLUCOSE FLUCTUATION [None]
  - COGNITIVE DISORDER [None]
  - CONFUSIONAL STATE [None]
  - DIABETES MELLITUS [None]
  - DRY MOUTH [None]
  - MALAISE [None]
  - MENTAL IMPAIRMENT [None]
  - PANIC ATTACK [None]
  - SOMNOLENCE [None]
  - THIRST [None]
  - VISION BLURRED [None]
